FAERS Safety Report 6054476-7 (Version None)
Quarter: 2009Q1

REPORT INFORMATION
  Report Type: 
  Country: None (occurrence: None)
  Receive Date: 20090123
  Receipt Date: 20090123
  Transmission Date: 20090719
  Serious: Yes (Other)
  Sender: FDA-Public Use
  Company Number: None

PATIENT
  Age: 75 Year
  Sex: Female
  Weight: 56.6996 kg

DRUGS (1)
  1. AMLODIPINE [Suspect]
     Indication: BLOOD PRESSURE
     Dosage: 10 MG DAILY PO
     Route: 048
     Dates: start: 20080101

REACTIONS (4)
  - ABASIA [None]
  - DIZZINESS [None]
  - FEELING ABNORMAL [None]
  - PRODUCT QUALITY ISSUE [None]
